FAERS Safety Report 24708245 (Version 4)
Quarter: 2025Q1

REPORT INFORMATION
  Report Type: Spontaneous
  Country: US (occurrence: US)
  Receive Date: 20241207
  Receipt Date: 20250309
  Transmission Date: 20250408
  Serious: Yes (Hospitalization, Other)
  Sender: ABBVIE
  Company Number: US-ABBVIE-6030314

PATIENT
  Age: 62 Year
  Sex: Male
  Weight: 111 kg

DRUGS (9)
  1. HUMIRA [Suspect]
     Active Substance: ADALIMUMAB
     Indication: Ankylosing spondylitis
     Route: 058
     Dates: start: 20180720, end: 202103
  2. HUMIRA [Suspect]
     Active Substance: ADALIMUMAB
     Route: 058
     Dates: start: 202107, end: 202112
  3. COSENTYX [Concomitant]
     Active Substance: SECUKINUMAB
     Indication: Product used for unknown indication
  4. PREDNISONE [Concomitant]
     Active Substance: PREDNISONE
     Indication: Product used for unknown indication
  5. ALEVE [Concomitant]
     Active Substance: NAPROXEN SODIUM
     Indication: Product used for unknown indication
  6. TYLENOL [Concomitant]
     Active Substance: ACETAMINOPHEN
     Indication: Product used for unknown indication
  7. TRAMADOL [Concomitant]
     Active Substance: TRAMADOL
     Indication: Pain
  8. ATENOLOL [Concomitant]
     Active Substance: ATENOLOL
     Indication: Hypertension
  9. Zoster [Concomitant]
     Indication: Product used for unknown indication

REACTIONS (11)
  - Spinal column injury [Recovered/Resolved]
  - Neuralgia [Recovered/Resolved]
  - Ankylosing spondylitis [Recovered/Resolved]
  - Spinal cord compression [Recovered/Resolved]
  - Herpes zoster [Unknown]
  - Pneumonia [Recovering/Resolving]
  - Immunodeficiency [Unknown]
  - Spinal pain [Recovered/Resolved]
  - Drug resistance [Unknown]
  - Therapeutic product effect decreased [Not Recovered/Not Resolved]
  - Intervertebral disc protrusion [Recovered/Resolved]

NARRATIVE: CASE EVENT DATE: 20210101
